FAERS Safety Report 5648568-1 (Version None)
Quarter: 2008Q1

REPORT INFORMATION
  Report Type: 
  Country: None (occurrence: None)
  Receive Date: 20080304
  Receipt Date: 20080303
  Transmission Date: 20080703
  Serious: Yes (Hospitalization)
  Sender: FDA-Public Use
  Company Number: A0712890A

PATIENT
  Age: 25 Year
  Sex: Female

DRUGS (1)
  1. ALLI [Suspect]
     Dates: start: 20071227, end: 20071231

REACTIONS (5)
  - CHOLECYSTECTOMY [None]
  - DIARRHOEA [None]
  - EATING DISORDER [None]
  - GALLBLADDER DISORDER [None]
  - PAIN [None]
